FAERS Safety Report 6772681-9 (Version None)
Quarter: 2010Q2

REPORT INFORMATION
  Report Type: 
  Country: None (occurrence: None)
  Receive Date: 20100616
  Receipt Date: 20100105
  Transmission Date: 20101027
  Serious: No
  Sender: FDA-Public Use
  Company Number: US-ASTRAZENECA-2010SE00288

PATIENT
  Age: 77 Year
  Sex: Female
  Weight: 79.4 kg

DRUGS (12)
  1. PULMICORT RESPULES [Suspect]
     Indication: ASTHMA
     Route: 055
     Dates: start: 20080101
  2. PROAIR HFA [Concomitant]
  3. FUROSEMIDE [Concomitant]
  4. K-DUR [Concomitant]
  5. FOSAMAX [Concomitant]
  6. SINGULAIR [Concomitant]
  7. OMEPRAZOLE [Concomitant]
  8. ALBUTEROL/IPRSTROPIUM [Concomitant]
  9. LEVOTHYROXINE SODIUM [Concomitant]
  10. PRAVASTATIN [Concomitant]
  11. BUPROPION HCL [Concomitant]
  12. CYMBALTA [Concomitant]

REACTIONS (6)
  - CONTUSION [None]
  - DYSPHONIA [None]
  - FATIGUE [None]
  - IMPAIRED HEALING [None]
  - PRURITUS [None]
  - TONGUE ERUPTION [None]
